FAERS Safety Report 25902137 (Version 1)
Quarter: 2025Q4

REPORT INFORMATION
  Report Type: Spontaneous
  Country: AU (occurrence: AU)
  Receive Date: 20251009
  Receipt Date: 20251009
  Transmission Date: 20260119
  Serious: Yes (Other)
  Sender: PFIZER
  Company Number: AU-PFIZER INC-202500199004

PATIENT
  Age: 50 Year
  Sex: Male

DRUGS (1)
  1. ETRASIMOD [Suspect]
     Active Substance: ETRASIMOD

REACTIONS (1)
  - Embolism venous [Unknown]
